FAERS Safety Report 5533167-2 (Version None)
Quarter: 2007Q4

REPORT INFORMATION
  Report Type: 
  Country: None (occurrence: None)
  Receive Date: 20071204
  Receipt Date: 20071122
  Transmission Date: 20080405
  Serious: Yes (Hospitalization)
  Sender: FDA-Public Use
  Company Number: GB-ROCHE-533197

PATIENT
  Age: 67 Year
  Sex: Female
  Weight: 95.3 kg

DRUGS (5)
  1. ORLISTAT [Suspect]
     Indication: OBESITY
     Route: 048
     Dates: start: 20070428, end: 20071101
  2. PROZAC [Concomitant]
     Indication: DEPRESSION
     Route: 048
  3. OMEPRAZOLE [Concomitant]
     Route: 048
  4. METFORMIN HCL [Concomitant]
     Route: 048
  5. 1 CONCOMITANT DRUG [Concomitant]
     Route: 048

REACTIONS (4)
  - CONTUSION [None]
  - FALL [None]
  - HAND FRACTURE [None]
  - HEAD INJURY [None]
